FAERS Safety Report 12527030 (Version 2)
Quarter: 2016Q3

REPORT INFORMATION
  Report Type: Spontaneous
  Country: MT (occurrence: MT)
  Receive Date: 20160705
  Receipt Date: 20160708
  Transmission Date: 20161109
  Serious: Yes (Other)
  Sender: FDA-Public Use
  Company Number: MT-GLAXOSMITHKLINE-MT2016GSK094380

PATIENT
  Sex: Male

DRUGS (2)
  1. CATAFAST [Suspect]
     Active Substance: DICLOFENAC POTASSIUM
     Indication: ARTHROPATHY
     Dosage: UNK
  2. CATAFLAM [Suspect]
     Active Substance: DICLOFENAC POTASSIUM
     Indication: ARTHROPATHY
     Dosage: UNK

REACTIONS (2)
  - Gastric ulcer [Unknown]
  - Intestinal angina [Unknown]

NARRATIVE: CASE EVENT DATE: 201501
